FAERS Safety Report 7092765-8 (Version None)
Quarter: 2010Q4

REPORT INFORMATION
  Report Type: 
  Country: None (occurrence: None)
  Receive Date: 20101109
  Receipt Date: 20101109
  Transmission Date: 20110411
  Serious: Yes (Other)
  Sender: FDA-Public Use
  Company Number: None

PATIENT
  Sex: Female
  Weight: 127.0072 kg

DRUGS (1)
  1. DROPERIDOL [Suspect]
     Indication: NAUSEA
     Dosage: ONCE IV
     Route: 042
     Dates: start: 20101015

REACTIONS (2)
  - ANXIETY [None]
  - TREMOR [None]
